FAERS Safety Report 9652889 (Version 1)
Quarter: 2013Q4

REPORT INFORMATION
  Report Type: Report from Study
  Country: US (occurrence: US)
  Receive Date: 20131029
  Receipt Date: 20131029
  Transmission Date: 20140711
  Serious: Yes (Other)
  Sender: FDA-Public Use
  Company Number: US-BAYER-2013-130316

PATIENT
  Sex: 0

DRUGS (2)
  1. ACETYLSALICYLIC ACID({=100 MG) [Suspect]
     Indication: ANTICOAGULANT THERAPY
  2. CLOPIDOGREL [Suspect]
     Indication: ANTICOAGULANT THERAPY

REACTIONS (1)
  - Vitreous haemorrhage [Recovered/Resolved]
